FAERS Safety Report 6060098-4 (Version None)
Quarter: 2009Q1

REPORT INFORMATION
  Report Type: 
  Country: None (occurrence: None)
  Receive Date: 20090128
  Receipt Date: 20090121
  Transmission Date: 20090719
  Serious: Yes (Other)
  Sender: FDA-Public Use
  Company Number: TPG2009A00138

PATIENT
  Age: 57 Year
  Sex: Male

DRUGS (1)
  1. COMPETACT(PIOGLITAZONE HYDROCHLORIDE,METFORMIN HYDROCHLORIDE) [Suspect]
     Indication: DRUG USE FOR UNKNOWN INDICATION
     Dosage: PIOGLITAZONE/METFORMIN PER ORAL
     Route: 048

REACTIONS (1)
  - URTICARIA [None]
